FAERS Safety Report 19244994 (Version 1)
Quarter: 2021Q2

REPORT INFORMATION
  Report Type: Spontaneous
  Country: FR (occurrence: FR)
  Receive Date: 20210511
  Receipt Date: 20210511
  Transmission Date: 20210717
  Serious: Yes (Hospitalization, Other)
  Sender: FDA-Public Use
  Company Number: FR-JAZZ-2021-FR-005714

PATIENT

DRUGS (3)
  1. MIDAZOLAM. [Suspect]
     Active Substance: MIDAZOLAM
     Indication: PRODUCT USED FOR UNKNOWN INDICATION
  2. VYXEOS [Suspect]
     Active Substance: CYTARABINE\DAUNORUBICIN
     Indication: ACUTE MYELOID LEUKAEMIA
     Dosage: 100 IU/ML
     Route: 042
     Dates: start: 20201218
  3. VYXEOS [Suspect]
     Active Substance: CYTARABINE\DAUNORUBICIN
     Dosage: DOSE OF 135 U/M2/ 1 CYCLE
     Route: 042

REACTIONS (11)
  - Tachycardia [Recovered/Resolved]
  - Febrile bone marrow aplasia [Recovered/Resolved]
  - Venoocclusive disease [Recovered/Resolved]
  - Sepsis [Recovered/Resolved]
  - Clostridium difficile colitis [Recovered/Resolved]
  - Dysuria [Recovered/Resolved]
  - Increased bronchial secretion [Recovered/Resolved]
  - Hyperaesthesia [Recovered/Resolved]
  - Cholestasis [Recovered/Resolved]
  - Cellulitis [Recovered/Resolved]
  - Off label use [Unknown]

NARRATIVE: CASE EVENT DATE: 20201230
